FAERS Safety Report 20734576 (Version 2)
Quarter: 2022Q2

REPORT INFORMATION
  Report Type: Spontaneous
  Country: GB (occurrence: GB)
  Receive Date: 20220421
  Receipt Date: 20220516
  Transmission Date: 20220720
  Serious: No
  Sender: FDA-Public Use
  Company Number: GB-PFIZER INC-202200357910

PATIENT
  Age: 9 Year
  Sex: Female

DRUGS (1)
  1. GENOTROPIN [Suspect]
     Active Substance: SOMATROPIN
     Dosage: 0.6 MG

REACTIONS (3)
  - Drug dose omission by device [Unknown]
  - Device breakage [Unknown]
  - Device failure [Unknown]
